FAERS Safety Report 9682792 (Version 1)
Quarter: 2013Q4

REPORT INFORMATION
  Report Type: Spontaneous
  Country: US (occurrence: US)
  Receive Date: 20131112
  Receipt Date: 20131112
  Transmission Date: 20140711
  Serious: Yes (Hospitalization)
  Sender: FDA-Public Use
  Company Number: PHEH2013US023478

PATIENT
  Sex: 0

DRUGS (1)
  1. CLOZARIL [Suspect]
     Dosage: 400 MG, DAILY DOSE

REACTIONS (1)
  - Urinary tract infection [Unknown]
